FAERS Safety Report 11829798 (Version 1)
Quarter: 2015Q4

REPORT INFORMATION
  Report Type: Spontaneous
  Country: FR (occurrence: FR)
  Receive Date: 20151212
  Receipt Date: 20151212
  Transmission Date: 20160305
  Serious: Yes (Life-Threatening)
  Sender: FDA-Public Use
  Company Number: FR-009507513-1512FRA006521

PATIENT
  Age: 62 Year
  Sex: Male

DRUGS (1)
  1. ESMERON [Suspect]
     Active Substance: ROCURONIUM BROMIDE
     Dosage: UNK
     Route: 042
     Dates: start: 20150924, end: 20150924

REACTIONS (2)
  - Anaphylactic reaction [Recovered/Resolved]
  - Cardio-respiratory arrest [Recovered/Resolved]

NARRATIVE: CASE EVENT DATE: 20150924
